FAERS Safety Report 20297392 (Version 1)
Quarter: 2022Q1

REPORT INFORMATION
  Report Type: Spontaneous
  Country: FR (occurrence: FR)
  Receive Date: 20220105
  Receipt Date: 20220105
  Transmission Date: 20220423
  Serious: Yes (Hospitalization)
  Sender: FDA-Public Use
  Company Number: FR-AFSSAPS-GR20215159

PATIENT
  Age: 72 Year
  Sex: Male

DRUGS (1)
  1. RISPERIDONE [Suspect]
     Active Substance: RISPERIDONE
     Indication: Psychotic disorder
     Dosage: 5 MILLIGRAM
     Route: 048
     Dates: start: 20211007, end: 20211129

REACTIONS (1)
  - Rabbit syndrome [Recovered/Resolved]

NARRATIVE: CASE EVENT DATE: 20211124
